FAERS Safety Report 5519619-X (Version None)
Quarter: 2007Q4

REPORT INFORMATION
  Report Type: 
  Country: None (occurrence: None)
  Receive Date: 20071116
  Receipt Date: 20071106
  Transmission Date: 20080405
  Serious: Yes (Death)
  Sender: FDA-Public Use
  Company Number: ES-ROCHE-531727

PATIENT

DRUGS (2)
  1. CAPECITABINE [Suspect]
     Dosage: FOR 14 DAYS
     Route: 048
  2. OXALIPLATIN [Suspect]
     Dosage: ON DAY 1 EVERY 3 WEEKS
     Route: 065

REACTIONS (3)
  - FEBRILE NEUTROPENIA [None]
  - STOMATITIS [None]
  - THROMBOCYTOPENIA [None]
